FAERS Safety Report 8005871-8 (Version None)
Quarter: 2011Q4

REPORT INFORMATION
  Report Type: 
  Country: None (occurrence: None)
  Receive Date: 20111223
  Receipt Date: 20111219
  Transmission Date: 20120403
  Serious: Yes (Hospitalization, Other)
  Sender: FDA-Public Use
  Company Number: US-ASTRAZENECA-2010SE46685

PATIENT
  Age: 63 Year
  Sex: Female
  Weight: 58.1 kg

DRUGS (2)
  1. IBUPROFEN (ADVIL) [Concomitant]
     Indication: HEADACHE
  2. NEXIUM [Suspect]
     Indication: GASTROOESOPHAGEAL REFLUX DISEASE
     Route: 048
     Dates: start: 20030101

REACTIONS (3)
  - HEADACHE [None]
  - ROTATOR CUFF SYNDROME [None]
  - OSTEOPOROSIS [None]
